FAERS Safety Report 7932339-7 (Version None)
Quarter: 2011Q4

REPORT INFORMATION
  Report Type: 
  Country: None (occurrence: None)
  Receive Date: 20111121
  Receipt Date: 20111116
  Transmission Date: 20120403
  Serious: Yes (Other)
  Sender: FDA-Public Use
  Company Number: US-AMGEN-USASP2011039053

PATIENT
  Age: 63 Year
  Sex: Female

DRUGS (2)
  1. ENBREL [Suspect]
     Indication: RHEUMATOID ARTHRITIS
     Dosage: 50 MG, QWK
     Dates: start: 20070120
  2. TREXALL [Concomitant]
     Dates: start: 20030101

REACTIONS (6)
  - BREAST CANCER [None]
  - SKIN PAPILLOMA [None]
  - BREAST MASS [None]
  - PELVIC DISCOMFORT [None]
  - RHEUMATOID NODULE [None]
  - RHEUMATOID ARTHRITIS [None]
